FAERS Safety Report 23286472 (Version 1)
Quarter: 2023Q4

REPORT INFORMATION
  Report Type: Report from Study
  Country: US (occurrence: US)
  Receive Date: 20231212
  Receipt Date: 20231212
  Transmission Date: 20240109
  Serious: Yes (Hospitalization, Other)
  Sender: FDA-Public Use
  Company Number: US-ABBVIE-5504723

PATIENT
  Sex: Male

DRUGS (4)
  1. SKYRIZI [Suspect]
     Active Substance: RISANKIZUMAB-RZAA
     Indication: Crohn^s disease
     Dosage: WEEK 12?STRENGTH:360MG/2.4M?DOSE:360MG/2.4ML
     Route: 058
     Dates: start: 20231114
  2. SKYRIZI [Suspect]
     Active Substance: RISANKIZUMAB-RZAA
     Indication: Crohn^s disease
     Dosage: TIME INTERVAL: TOTAL: WEEK ZERO
     Route: 042
     Dates: start: 20230817, end: 20230817
  3. SKYRIZI [Suspect]
     Active Substance: RISANKIZUMAB-RZAA
     Indication: Crohn^s disease
     Dosage: TIME INTERVAL: TOTAL: WEEK FOUR
     Route: 042
     Dates: start: 20230914, end: 20230914
  4. SKYRIZI [Suspect]
     Active Substance: RISANKIZUMAB-RZAA
     Indication: Crohn^s disease
     Dosage: TIME INTERVAL: TOTAL: WEEK EIGHT
     Route: 042
     Dates: start: 20231012, end: 20231012

REACTIONS (4)
  - Scar [Unknown]
  - Post procedural complication [Unknown]
  - Injection site papule [Recovered/Resolved]
  - Small intestinal resection [Unknown]

NARRATIVE: CASE EVENT DATE: 20230101
